FAERS Safety Report 9251161 (Version 1)
Quarter: 2013Q1

REPORT INFORMATION
  Report Type: Spontaneous
  Country: US (occurrence: None)
  Receive Date: 20130305
  Receipt Date: 20130305
  Transmission Date: 20140127
  Serious: Yes (Other)
  Sender: FDA-Public Use
  Company Number: 163-21880-12042550

PATIENT
  Age: 66 Year
  Sex: Male
  Weight: 95.26 kg

DRUGS (6)
  1. REVLIMID [Suspect]
     Indication: MYELODYSPLASTIC SYNDROME
     Dosage: 10MG, 1 IN 1 D, PO
     Route: 048
     Dates: start: 20120328
  2. HYDROCHLOROTHIAZIDE (HYDROCHLOROTHIAZIDE) [Concomitant]
  3. FENOFIBRATE (FENOFIBRATE) (FENOFIBRATE) [Concomitant]
  4. MISOPROSTOL (MISOPROSTOL) [Concomitant]
  5. METFORMIN (METFORMIN) [Concomitant]
  6. PRILOSEC [Concomitant]

REACTIONS (2)
  - Rash pruritic [None]
  - Pain [None]
